FAERS Safety Report 16364484 (Version 1)
Quarter: 2019Q2

REPORT INFORMATION
  Report Type: Spontaneous
  Country: CA (occurrence: CA)
  Receive Date: 20190528
  Receipt Date: 20190528
  Transmission Date: 20190711
  Serious: Yes (Life-Threatening, Hospitalization)
  Sender: FDA-Public Use
  Company Number: CA-TEVA-2019-CA-1054142

PATIENT
  Age: 34 Year
  Sex: Male
  Weight: 59.02 kg

DRUGS (9)
  1. GLYCINE. [Concomitant]
     Active Substance: GLYCINE
     Route: 065
  2. PHENYLALANINE [Concomitant]
     Active Substance: PHENYLALANINE
     Route: 065
  3. LEMON BALM [Concomitant]
  4. TYROSINE [Concomitant]
     Active Substance: TYROSINE
     Route: 065
  5. KAVA [Concomitant]
     Active Substance: PIPER METHYSTICUM ROOT
     Dosage: LIQUID
     Route: 065
  6. CLONAZEPAM. [Suspect]
     Active Substance: CLONAZEPAM
     Indication: INSOMNIA
     Dosage: 2 MILLIGRAM DAILY;
     Route: 048
  7. CHAMOMILE TEA [Concomitant]
     Active Substance: MATRICARIA RECUTITA
     Route: 065
  8. MELATONIN [Concomitant]
     Active Substance: MELATONIN
     Route: 065
  9. TRYPTOPHAN [Concomitant]
     Active Substance: TRYPTOPHAN
     Route: 065

REACTIONS (18)
  - Fatigue [Recovering/Resolving]
  - Feeling abnormal [Recovering/Resolving]
  - Food allergy [Recovering/Resolving]
  - Drug intolerance [Recovering/Resolving]
  - Flatulence [Recovering/Resolving]
  - Gastrointestinal disorder [Recovering/Resolving]
  - Insomnia [Recovering/Resolving]
  - Paraesthesia [Recovering/Resolving]
  - Constipation [Recovering/Resolving]
  - Salivary hypersecretion [Recovering/Resolving]
  - Cognitive disorder [Recovering/Resolving]
  - Illness anxiety disorder [Recovering/Resolving]
  - Weight decreased [Recovering/Resolving]
  - Withdrawal syndrome [Recovering/Resolving]
  - Abdominal distension [Recovering/Resolving]
  - Anxiety [Recovering/Resolving]
  - Decreased appetite [Recovering/Resolving]
  - Memory impairment [Recovering/Resolving]
